FAERS Safety Report 5326057-1 (Version None)
Quarter: 2007Q2

REPORT INFORMATION
  Report Type: 
  Country: None (occurrence: None)
  Receive Date: 20070516
  Receipt Date: 20070510
  Transmission Date: 20071010
  Serious: Yes (Death, Hospitalization, Other)
  Sender: FDA-Public Use
  Company Number: US-ELI_LILLY_AND_COMPANY-US200609007472

PATIENT
  Age: 26 Year
  Sex: Male
  Weight: 152.83 kg

DRUGS (20)
  1. ABILIFY [Concomitant]
     Dosage: 10 MG, UNK
     Dates: start: 20031030, end: 20031204
  2. SEROQUEL [Concomitant]
     Dosage: 200 MG, UNK
  3. RISPERIDONE [Concomitant]
     Dosage: 1 MG, UNK
  4. GEODON [Concomitant]
     Dosage: 60 MG, UNK
     Dates: start: 20010714
  5. DEPAKOTE [Concomitant]
     Dosage: 500 MG, UNK
     Dates: start: 20020714
  6. DEPAKOTE [Concomitant]
     Dosage: 250 MG, UNK
     Dates: start: 19991010, end: 20020714
  7. HALDOL [Concomitant]
     Dosage: 1 MG, UNK
     Dates: start: 20020321, end: 20020418
  8. HALDOL [Concomitant]
     Dosage: 2 MG, UNK
     Dates: start: 20020418, end: 20030130
  9. HALDOL [Concomitant]
     Dosage: 5 MG, UNK
     Dates: start: 20030130
  10. TOPAMAX [Concomitant]
     Dosage: 25 MG, UNK
     Dates: start: 20031002, end: 20031020
  11. LASIX [Concomitant]
     Dosage: 20 MG, UNK
     Dates: start: 20030114, end: 20030402
  12. LASIX [Concomitant]
     Dosage: 40 MG, UNK
     Dates: start: 20030402
  13. HYDROCHLOROTHIAZIDE [Concomitant]
     Dosage: 25 MG, UNK
     Dates: start: 20030729, end: 20040419
  14. HYDROCHLOROTHIAZIDE [Concomitant]
     Dosage: 50 MG, UNK
     Dates: start: 20040419
  15. ZYPREXA ZYDIS [Suspect]
     Dosage: 5 MG, UNK
     Dates: start: 20020810, end: 20030211
  16. ZYPREXA [Suspect]
     Dosage: 5 MG, 3/D
     Dates: start: 19990101
  17. ZYPREXA [Suspect]
     Dosage: 10 MG, UNK
     Dates: start: 19991102, end: 19991230
  18. ZYPREXA [Suspect]
     Dosage: 7.5 MG, UNK
     Dates: start: 19991230, end: 20000104
  19. ZYPREXA [Suspect]
     Dosage: 5 MG, UNK
     Dates: start: 20000104, end: 20010819
  20. ZYPREXA [Suspect]
     Dosage: 5 MG, UNK
     Dates: start: 20030211

REACTIONS (15)
  - DIABETES MELLITUS [None]
  - DIABETIC COMA [None]
  - DIABETIC KETOACIDOSIS [None]
  - EMBOLISM [None]
  - HEPARIN-INDUCED THROMBOCYTOPENIA [None]
  - HEPATIC STEATOSIS [None]
  - HEPATOMEGALY [None]
  - HYPERTENSION [None]
  - LEFT VENTRICULAR HYPERTROPHY [None]
  - MUCOSAL HAEMORRHAGE [None]
  - NEPHROSCLEROSIS [None]
  - RENAL FAILURE [None]
  - SPLENOMEGALY [None]
  - URINARY TRACT INFECTION [None]
  - WEIGHT INCREASED [None]
